FAERS Safety Report 19293935 (Version 1)
Quarter: 2021Q2

REPORT INFORMATION
  Report Type: Spontaneous
  Country: US (occurrence: US)
  Receive Date: 20210524
  Receipt Date: 20210524
  Transmission Date: 20210717
  Serious: Yes (Hospitalization)
  Sender: FDA-Public Use
  Company Number: None

PATIENT
  Age: 61 Year
  Sex: Female
  Weight: 54.7 kg

DRUGS (1)
  1. PACLITAXEL. [Suspect]
     Active Substance: PACLITAXEL
     Indication: BREAST CANCER
     Dosage: ?          OTHER FREQUENCY:WEEKLY;?
     Route: 042
     Dates: start: 20210513, end: 20210513

REACTIONS (6)
  - Infusion related reaction [None]
  - Back pain [None]
  - Tachycardia [None]
  - Wheezing [None]
  - Hot flush [None]
  - Flushing [None]

NARRATIVE: CASE EVENT DATE: 20210513
